FAERS Safety Report 8374312-3 (Version None)
Quarter: 2012Q2

REPORT INFORMATION
  Report Type: 
  Country: None (occurrence: None)
  Receive Date: 20120521
  Receipt Date: 20120515
  Transmission Date: 20120825
  Serious: Yes (Hospitalization, Other)
  Sender: FDA-Public Use
  Company Number: PHHO2011CA09336

PATIENT
  Sex: Female
  Weight: 27.7 kg

DRUGS (1)
  1. ILARIS [Suspect]
     Indication: CRYOPYRIN ASSOCIATED PERIODIC SYNDROME
     Dosage: 58 MG/ MONTH
     Route: 048
     Dates: start: 20100816, end: 20110502

REACTIONS (8)
  - VOMITING [None]
  - FATIGUE [None]
  - PNEUMONIA [None]
  - NEUTROPENIA [None]
  - NAUSEA [None]
  - ABDOMINAL PAIN [None]
  - LEUKOPENIA [None]
  - PURPURA [None]
